FAERS Safety Report 16980484 (Version 3)
Quarter: 2019Q4

REPORT INFORMATION
  Report Type: Spontaneous
  Country: CA (occurrence: CA)
  Receive Date: 20191031
  Receipt Date: 20191204
  Transmission Date: 20200122
  Serious: Yes (Other)
  Sender: FDA-Public Use
  Company Number: CA-PFIZER INC-2018275535

PATIENT
  Age: 62 Year
  Sex: Female
  Weight: 70 kg

DRUGS (3)
  1. XELJANZ [Suspect]
     Active Substance: TOFACITINIB CITRATE
     Indication: RHEUMATOID ARTHRITIS
     Dosage: 5 MG, 2X/DAY
     Route: 048
     Dates: start: 20180703, end: 2019
  2. PREDNISONE. [Concomitant]
     Active Substance: PREDNISONE
     Dosage: 10 MG, DAILY
     Route: 048
  3. HYDROXYCHLOROQUINE [Concomitant]
     Active Substance: HYDROXYCHLOROQUINE
     Dosage: 200 MG, 1X/DAY
     Route: 048

REACTIONS (8)
  - Confusional state [Unknown]
  - Sensitivity to weather change [Unknown]
  - Loss of personal independence in daily activities [Unknown]
  - Drug ineffective [Unknown]
  - Blood pressure diastolic increased [Unknown]
  - Therapeutic product effect decreased [Unknown]
  - Product dispensing issue [Unknown]
  - Respiratory disorder [Recovered/Resolved]

NARRATIVE: CASE EVENT DATE: 201807
